FAERS Safety Report 10021719 (Version 1)
Quarter: 2014Q1

REPORT INFORMATION
  Report Type: Report from Study
  Country: US (occurrence: US)
  Receive Date: 20140319
  Receipt Date: 20140319
  Transmission Date: 20141002
  Serious: Yes (Hospitalization, Other)
  Sender: FDA-Public Use
  Company Number: US-BAXTER-2014BAX012772

PATIENT
  Age: 4 Year
  Sex: Male
  Weight: 16.4 kg

DRUGS (12)
  1. CYCLOPHOSPHAMIDE FOR INJECTION, USP [Suspect]
     Indication: PRIMITIVE NEUROECTODERMAL TUMOUR
     Dosage: DAYS 1-5
     Route: 042
     Dates: start: 20130722
  2. CYCLOPHOSPHAMIDE FOR INJECTION, USP [Suspect]
     Dosage: DAYS 1-5
     Route: 042
     Dates: start: 20130909, end: 20130913
  3. CRIZOTINIB [Suspect]
     Indication: PRIMITIVE NEUROECTODERMAL TUMOUR
     Route: 048
     Dates: start: 20130722
  4. CRIZOTINIB [Suspect]
     Route: 048
     Dates: start: 20130909, end: 20130929
  5. TOPOTECAN HYDROCHLORIDE [Suspect]
     Indication: PRIMITIVE NEUROECTODERMAL TUMOUR
     Dosage: DAYS 1-5 EVERY 28 DAYS
     Route: 065
     Dates: start: 20130722
  6. TOPOTECAN HYDROCHLORIDE [Suspect]
     Dosage: DAYS 1-5 EVERY 28 DAYS
     Route: 065
     Dates: start: 20130909, end: 20130913
  7. ONDANSETRON [Concomitant]
     Indication: PRODUCT USED FOR UNKNOWN INDICATION
     Route: 065
     Dates: start: 20130722, end: 20130727
  8. ONDANSETRON [Concomitant]
     Route: 065
     Dates: start: 20130812, end: 20130817
  9. ONDANSETRON [Concomitant]
     Route: 065
     Dates: start: 20130909, end: 20130914
  10. BENADRYL [Concomitant]
     Indication: PRODUCT USED FOR UNKNOWN INDICATION
     Route: 065
     Dates: start: 20130729
  11. MIRALAX [Concomitant]
     Indication: PRODUCT USED FOR UNKNOWN INDICATION
     Route: 065
     Dates: start: 20130919, end: 20131001
  12. ACETAMINOPHEN [Concomitant]
     Indication: PRODUCT USED FOR UNKNOWN INDICATION
     Route: 065
     Dates: start: 20130928, end: 20130929

REACTIONS (2)
  - Sepsis [Recovering/Resolving]
  - Hypoxia [Recovered/Resolved]
